FAERS Safety Report 5484375-0 (Version None)
Quarter: 2007Q4

REPORT INFORMATION
  Report Type: 
  Country: None (occurrence: None)
  Receive Date: 20071012
  Receipt Date: 20071010
  Transmission Date: 20080405
  Serious: Yes (Death)
  Sender: FDA-Public Use
  Company Number: FR-ABBOTT-07P-056-0420224-00

PATIENT
  Sex: Female
  Weight: 53 kg

DRUGS (12)
  1. HUMIRA [Suspect]
     Indication: RHEUMATOID ARTHRITIS
     Route: 058
     Dates: start: 20040526, end: 20061220
  2. COMMERCIAL HUMIRA [Concomitant]
     Indication: RHEUMATOID ARTHRITIS
     Route: 058
     Dates: start: 20031020
  3. ACEBUTOLOL HYDROCHLORIDE [Concomitant]
     Indication: CARDIAC DISORDER
  4. ALENDRONATE SODIUM [Concomitant]
     Indication: OSTEOPOROSIS
  5. RELEVENE [Concomitant]
     Indication: DRUG USE FOR UNKNOWN INDICATION
  6. AMIODARONE HYDROCHLORIDE [Concomitant]
     Indication: CARDIAC DISORDER
  7. RILMENIDINE [Concomitant]
     Indication: CARDIAC DISORDER
  8. METHOTREXATE [Concomitant]
     Indication: PALINDROMIC RHEUMATISM
     Dosage: 6 TABLETS
  9. FOLIC ACID [Concomitant]
     Indication: PALINDROMIC RHEUMATISM
  10. ESOMEPRAZOLE MAGNESIUM [Concomitant]
     Indication: GASTRITIS PROPHYLAXIS
  11. COLCHIMAX [Concomitant]
     Indication: PALINDROMIC RHEUMATISM
  12. FLURBIPROFEN [Concomitant]
     Indication: PALINDROMIC RHEUMATISM

REACTIONS (1)
  - LUNG DISORDER [None]
